FAERS Safety Report 7000676-9 (Version None)
Quarter: 2010Q3

REPORT INFORMATION
  Report Type: 
  Country: None (occurrence: None)
  Receive Date: 20100920
  Receipt Date: 20100712
  Transmission Date: 20110219
  Serious: Yes (Other)
  Sender: FDA-Public Use
  Company Number: US-ASTRAZENECA-2010SE32470

PATIENT
  Age: 62 Year
  Sex: Male
  Weight: 84.4 kg

DRUGS (13)
  1. SEROQUEL [Suspect]
     Indication: BIPOLAR I DISORDER
     Route: 048
  2. CHANTIX [Suspect]
     Indication: EX-TOBACCO USER
     Route: 048
  3. CHANTIX [Suspect]
     Route: 048
     Dates: start: 20100101
  4. PRISTIQ [Suspect]
     Indication: DEPRESSION
     Route: 048
  5. COMBIVENT [Concomitant]
     Indication: CHRONIC OBSTRUCTIVE PULMONARY DISEASE
     Route: 055
  6. ALBUTEROL [Concomitant]
     Indication: CHRONIC OBSTRUCTIVE PULMONARY DISEASE
  7. SPIRIVA [Concomitant]
     Indication: CHRONIC OBSTRUCTIVE PULMONARY DISEASE
     Dosage: DAILY
  8. PREDNISONE [Concomitant]
     Indication: CHRONIC OBSTRUCTIVE PULMONARY DISEASE
  9. KLONOPIN [Concomitant]
     Indication: ANXIETY
  10. TOPAMAX [Concomitant]
     Indication: MIGRAINE
  11. SIMVASTATIN [Concomitant]
     Indication: LOW DENSITY LIPOPROTEIN INCREASED
  12. AGGRENOX [Concomitant]
  13. OYSCO [Concomitant]
     Dosage: THREE TIMES A DAY

REACTIONS (2)
  - DEPRESSION [None]
  - DRUG INEFFECTIVE [None]
